FAERS Safety Report 24022616 (Version 2)
Quarter: 2024Q3

REPORT INFORMATION
  Report Type: Spontaneous
  Country: IT (occurrence: IT)
  Receive Date: 20240627
  Receipt Date: 20240710
  Transmission Date: 20241016
  Serious: No
  Sender: ROCHE
  Company Number: IT-ROCHE-3564554

PATIENT
  Sex: Female

DRUGS (1)
  1. ENTRECTINIB [Suspect]
     Active Substance: ENTRECTINIB
     Indication: Non-small cell lung cancer
     Route: 065

REACTIONS (2)
  - Oedema peripheral [Unknown]
  - Myalgia [Unknown]
